FAERS Safety Report 11826446 (Version 3)
Quarter: 2016Q1

REPORT INFORMATION
  Report Type: Report from Study
  Country: US (occurrence: US)
  Receive Date: 20151211
  Receipt Date: 20160112
  Transmission Date: 20160525
  Serious: No
  Sender: FDA-Public Use
  Company Number: US-AMGEN-USASP2015131640

PATIENT
  Age: 58 Year
  Sex: Female
  Weight: 93.42 kg

DRUGS (4)
  1. ENBREL [Suspect]
     Active Substance: ETANERCEPT
     Dosage: UNK
     Route: 065
  2. CORTISONE [Concomitant]
     Active Substance: CORTISONE\HYDROCORTISONE
     Dosage: UNK
     Route: 065
  3. ENBREL [Suspect]
     Active Substance: ETANERCEPT
     Dosage: UNK
     Route: 065
  4. ENBREL [Suspect]
     Active Substance: ETANERCEPT
     Indication: RHEUMATOID ARTHRITIS
     Dosage: 50 MG, QWK
     Route: 058
     Dates: start: 20151009

REACTIONS (8)
  - Nasal congestion [Recovering/Resolving]
  - Injection site reaction [Not Recovered/Not Resolved]
  - Injection site bruising [Recovering/Resolving]
  - Productive cough [Recovering/Resolving]
  - Injection site rash [Not Recovered/Not Resolved]
  - Infection [Recovering/Resolving]
  - Nasopharyngitis [Unknown]
  - Injection site haemorrhage [Not Recovered/Not Resolved]

NARRATIVE: CASE EVENT DATE: 201510
